FAERS Safety Report 4365422-6 (Version None)
Quarter: 2004Q2

REPORT INFORMATION
  Report Type: 
  Country: None (occurrence: None)
  Receive Date: 20040520
  Receipt Date: 20040506
  Transmission Date: 20050107
  Serious: Yes (Death, Hospitalization)
  Sender: FDA-Public Use
  Company Number: US-SHR-03-019328

PATIENT
  Age: 84 Year
  Sex: Female
  Weight: 56 kg

DRUGS (40)
  1. GM-CSF (SARGRAMOSTIM) INJECTION [Suspect]
     Indication: COLORECTAL CANCER METASTATIC
     Dosage: 423 MCG/DAY X5 DAYS/WEEK, SUBCUTANEOUS
     Route: 058
     Dates: start: 20031122, end: 20031216
  2. CAMPTOSAR [Suspect]
     Indication: COLORECTAL CANCER METASTATIC
     Dosage: 211 MG, 1X/WEEK X 4WEEKS, INTRAVENOUS
     Route: 042
     Dates: start: 20031121, end: 20031211
  3. FLUOROURACIL [Suspect]
     Indication: COLORECTAL CANCER METASTATIC
     Dosage: 845 MG ONCE WEEKLY X 4 WEEKS, INTRAVENOUS
     Route: 042
     Dates: start: 20031121, end: 20031211
  4. LEUCOVORIN CALCIUM [Suspect]
     Indication: COLORECTAL CANCER METASTATIC
     Dosage: 34 MG ONCE WEEKLY X 4 WEEKS, INTRAVENOUS
     Route: 042
     Dates: start: 20031121, end: 20031211
  5. ZOFRAN [Concomitant]
  6. ZOFRAN [Concomitant]
  7. ZOFRAN [Concomitant]
  8. MEGACE [Concomitant]
  9. LEVAQUIN [Concomitant]
  10. IMODIUM [Concomitant]
  11. IMODIUM [Concomitant]
  12. SANDOSTATIN ^NOVARTIS^ (OCTREOTIDE ACETATE) [Concomitant]
  13. ZOSYN (TAZOBACTAM SODIUM, PIPERACILLIN SODIUM) [Concomitant]
  14. TAMIFLU /SCH/ (OSELTAMIVIR PHOSPHATE) [Concomitant]
  15. MAGNESIUM SULFATE [Concomitant]
  16. NEUTRA-PHOS (SODIUM PHOSPHATE DIBASIC, POTASSIUM PHOSPHATE MONOBASIC, [Concomitant]
  17. LEVOPHED [Concomitant]
  18. INTRAVENOUS FLUIDS [Concomitant]
  19. VASOPRESSIN INJECTION (VASOPRESSIN INJECTION) [Concomitant]
  20. POTASSIUM CHLORIDE [Concomitant]
  21. SODIUM CHLORIDE INJ [Concomitant]
  22. K-DUR 10 [Concomitant]
  23. NEUPOGEN [Concomitant]
  24. ATENOLOL [Concomitant]
  25. ACETYLSALICYLIC ACID SRT [Concomitant]
  26. INSULIN [Concomitant]
  27. PEPCID [Concomitant]
  28. NOREPINEPHRINE [Concomitant]
  29. ATIVAN [Concomitant]
  30. BICITRA [Concomitant]
  31. DIPRIVAN [Concomitant]
  32. FENTANYL [Concomitant]
  33. MORPHINE [Concomitant]
  34. BICARBONATE DRIP [Concomitant]
  35. DECADRON [Concomitant]
  36. DECADRON [Concomitant]
  37. ANZEMET (DOLASETRON MESILATE) [Concomitant]
  38. PROCRIT (ERYTHROPOIETIN) [Concomitant]
  39. TYLENOL /USA/ [Concomitant]
  40. HYDROCHLOROTHIAZIDE [Concomitant]

REACTIONS (25)
  - ANOREXIA [None]
  - ASTHENIA [None]
  - COMA [None]
  - DEHYDRATION [None]
  - DIARRHOEA [None]
  - DYSPHAGIA [None]
  - FEBRILE NEUTROPENIA [None]
  - HYPERGLYCAEMIA [None]
  - HYPERNATRAEMIA [None]
  - HYPOKALAEMIA [None]
  - INFLUENZA [None]
  - LETHARGY [None]
  - METABOLIC ACIDOSIS [None]
  - MULTI-ORGAN FAILURE [None]
  - MYALGIA [None]
  - NAUSEA [None]
  - OLIGURIA [None]
  - PANCYTOPENIA [None]
  - RENAL FAILURE ACUTE [None]
  - RESPIRATORY FAILURE [None]
  - SEPTIC SHOCK [None]
  - TACHYCARDIA [None]
  - TACHYPNOEA [None]
  - UNRESPONSIVE TO PAIN STIMULI [None]
  - VOMITING [None]
